FAERS Safety Report 11201766 (Version 5)
Quarter: 2015Q4

REPORT INFORMATION
  Report Type: Report from Study
  Country: JP (occurrence: JP)
  Receive Date: 20150619
  Receipt Date: 20151130
  Transmission Date: 20160304
  Serious: Yes (Death)
  Sender: FDA-Public Use
  Company Number: JP-EISAI MEDICAL RESEARCH-EC-2015-007775

PATIENT
  Age: 69 Year
  Sex: Male
  Weight: 54 kg

DRUGS (3)
  1. FENTOS [Concomitant]
     Active Substance: FENTANYL
  2. LANSOPRAZOLE OD [Concomitant]
     Active Substance: LANSOPRAZOLE
  3. LENVIMA [Suspect]
     Active Substance: LENVATINIB
     Indication: ANAPLASTIC THYROID CANCER
     Route: 048
     Dates: start: 20150525, end: 20150610

REACTIONS (2)
  - Tracheo-oesophageal puncture [Fatal]
  - Pneumothorax [Fatal]

NARRATIVE: CASE EVENT DATE: 20150611
